FAERS Safety Report 11538651 (Version 3)
Quarter: 2015Q4

REPORT INFORMATION
  Report Type: Spontaneous
  Country: US (occurrence: US)
  Receive Date: 20150923
  Receipt Date: 20151029
  Transmission Date: 20160304
  Serious: Yes (Other)
  Sender: FDA-Public Use
  Company Number: US-AUROBINDO-AUR-APL-2015-08323

PATIENT
  Sex: Female

DRUGS (1)
  1. GABAPENTIN CAPSULES [Suspect]
     Active Substance: GABAPENTIN
     Indication: HERPES ZOSTER
     Dosage: UNK
     Route: 065
     Dates: start: 201207

REACTIONS (3)
  - Balance disorder [Unknown]
  - Intestinal infarction [Unknown]
  - Dizziness [Unknown]
